FAERS Safety Report 9459666 (Version 1)
Quarter: 2013Q3

REPORT INFORMATION
  Report Type: Report from Study
  Country: FI (occurrence: FI)
  Receive Date: 20130815
  Receipt Date: 20130815
  Transmission Date: 20140515
  Serious: Yes (Hospitalization, Other)
  Sender: FDA-Public Use
  Company Number: PHHY2013FI085054

PATIENT
  Age: 65 Year
  Sex: Female

DRUGS (6)
  1. LEPONEX [Suspect]
     Indication: SCHIZOPHRENIA, PARANOID TYPE
     Dosage: 175 MG DAILY
     Route: 048
     Dates: start: 20130701, end: 20130802
  2. SYCREST [Concomitant]
     Dosage: 10 MG, QD
  3. SYCREST [Concomitant]
     Dosage: 10 MG, BID
  4. BISOPROLOL ORION [Concomitant]
     Indication: HYPERTENSION
     Dosage: 2.5 MG, UNK
     Route: 048
     Dates: start: 20130725
  5. IMOVANE [Concomitant]
     Indication: INSOMNIA
     Dosage: 7.5 MG, PRN
     Route: 048
     Dates: start: 20120507
  6. LEVOZIN [Concomitant]
     Indication: NERVOUSNESS
     Dosage: 50 MG, UNK
     Route: 048
     Dates: start: 20120503, end: 20130802

REACTIONS (9)
  - Infection [Unknown]
  - Pericarditis [Recovering/Resolving]
  - Electrocardiogram P wave biphasic [Recovering/Resolving]
  - Myocarditis [Recovering/Resolving]
  - General physical health deterioration [Unknown]
  - Heart rate irregular [Unknown]
  - C-reactive protein increased [Unknown]
  - Lymphopenia [Unknown]
  - Eosinophilia [Unknown]
